FAERS Safety Report 23116097 (Version 2)
Quarter: 2023Q4

REPORT INFORMATION
  Report Type: Report from Study
  Country: US (occurrence: US)
  Receive Date: 20231027
  Receipt Date: 20231109
  Transmission Date: 20240110
  Serious: Yes (Other)
  Sender: FDA-Public Use
  Company Number: US-PFIZER INC-PV202300174991

PATIENT
  Age: 74 Year
  Sex: Female

DRUGS (10)
  1. MEKTOVI [Suspect]
     Active Substance: BINIMETINIB
     Dosage: 45 MG, 2X/DAY
     Route: 048
     Dates: start: 20210419, end: 20231020
  2. BRAFTOVI [Suspect]
     Active Substance: ENCORAFENIB
     Dosage: 450 MG, 1X/DAY
     Route: 048
     Dates: start: 20210419, end: 20231020
  3. TYLENOL WITH CODEINE [Concomitant]
     Active Substance: ACETAMINOPHEN\CODEINE PHOSPHATE
  4. NORCO [Concomitant]
     Active Substance: ACETAMINOPHEN\HYDROCODONE BITARTRATE
  5. ELIQUIS [Concomitant]
     Active Substance: APIXABAN
  6. PLAQUENIL [Concomitant]
     Active Substance: HYDROXYCHLOROQUINE SULFATE
  7. LOSARTAN [Concomitant]
     Active Substance: LOSARTAN
  8. NARCAN [Concomitant]
     Active Substance: NALOXONE HYDROCHLORIDE
  9. OMEPRAZOLE [Concomitant]
     Active Substance: OMEPRAZOLE
  10. PREDNISONE [Concomitant]
     Active Substance: PREDNISONE

REACTIONS (2)
  - Bone pain [Unknown]
  - Gait inability [Unknown]
